FAERS Safety Report 4907368-8 (Version None)
Quarter: 2006Q1

REPORT INFORMATION
  Report Type: 
  Country: None (occurrence: None)
  Receive Date: 20060208
  Receipt Date: 20060208
  Transmission Date: 20060701
  Serious: Yes (Death)
  Sender: FDA-Public Use
  Company Number: None

PATIENT
  Age: 76 Year
  Sex: Female
  Weight: 51.2 kg

DRUGS (16)
  1. MYLOTARG [Suspect]
     Indication: ACUTE MYELOID LEUKAEMIA
     Dosage: 13 MG ONCE IV
     Route: 042
     Dates: start: 20050425, end: 20050425
  2. LEXAPRO [Concomitant]
  3. MIRTAZAPINE [Concomitant]
  4. LEVOTHYROXINE SODIUM [Concomitant]
  5. VALACYCLOVIR HCL [Concomitant]
  6. VANCOMYCIN [Concomitant]
  7. AZTREONAM [Concomitant]
  8. CASPOFUNGIN [Concomitant]
  9. METRONIDAZOLE [Concomitant]
  10. ALBUTEROL [Concomitant]
  11. LIDOCAINE [Concomitant]
  12. MAALOX FAST BLOCKER [Concomitant]
  13. BENADRYL [Concomitant]
  14. LOPERAMIDE [Concomitant]
  15. ALBUMIN (HUMAN) [Concomitant]
  16. BUMETANIDE [Concomitant]

REACTIONS (5)
  - BRONCHITIS ACUTE [None]
  - PLEURAL EFFUSION [None]
  - PNEUMONIA [None]
  - RESPIRATORY FAILURE [None]
  - TACHYCARDIA [None]
